FAERS Safety Report 12872750 (Version 4)
Quarter: 2017Q1

REPORT INFORMATION
  Report Type: Report from Study
  Country: None (occurrence: TW)
  Receive Date: 20161021
  Receipt Date: 20170118
  Transmission Date: 20170428
  Serious: Yes (Death, Hospitalization)
  Sender: FDA-Public Use
  Company Number: TW-ABBVIE-16K-153-1758627-00

PATIENT
  Age: 81 Year
  Sex: Female

DRUGS (1)
  1. HUMIRA [Suspect]
     Active Substance: ADALIMUMAB
     Indication: RHEUMATOID ARTHRITIS
     Route: 058
     Dates: start: 20110323, end: 20160831

REACTIONS (7)
  - Pneumonia staphylococcal [Fatal]
  - Loss of consciousness [Unknown]
  - Cardiac arrest [Fatal]
  - Pleural effusion [Fatal]
  - Renal failure [Fatal]
  - Septic shock [Fatal]
  - Klebsiella infection [Fatal]

NARRATIVE: CASE EVENT DATE: 2016
